FAERS Safety Report 25072435 (Version 1)
Quarter: 2025Q1

REPORT INFORMATION
  Report Type: Spontaneous
  Country: US (occurrence: US)
  Receive Date: 20250313
  Receipt Date: 20250313
  Transmission Date: 20250409
  Serious: No
  Sender: BIOGEN
  Company Number: US-BIOGEN-2024BI01294078

PATIENT
  Age: 41 Year
  Sex: Female

DRUGS (3)
  1. VUMERITY [Suspect]
     Active Substance: DIROXIMEL FUMARATE
     Indication: Relapsing-remitting multiple sclerosis
     Dosage: FROM 13-DEC-2024 PATEINT STARTED VUMERITY (231 MG CAPSULE) 1 CAPSULE BY MOUTH TWO TIMES A DAY THE...
     Route: 050
     Dates: start: 20241213
  2. VUMERITY [Suspect]
     Active Substance: DIROXIMEL FUMARATE
     Dosage: STARTED TAKING THE 2 CAPSULES BY MOUTH, 2 TIMES A DAY WITH THE PM DOSE
     Route: 050
     Dates: start: 20241220
  3. VUMERITY [Suspect]
     Active Substance: DIROXIMEL FUMARATE
     Route: 050
     Dates: start: 20241211

REACTIONS (2)
  - Influenza [Unknown]
  - Flushing [Unknown]

NARRATIVE: CASE EVENT DATE: 20241213
